FAERS Safety Report 10151660 (Version 1)
Quarter: 2014Q2

REPORT INFORMATION
  Report Type: Spontaneous
  Country: FR (occurrence: FR)
  Receive Date: 20140505
  Receipt Date: 20140505
  Transmission Date: 20141212
  Serious: Yes (Death, Hospitalization)
  Sender: FDA-Public Use
  Company Number: FR-ROCHE-1393260

PATIENT
  Age: 56 Year
  Sex: Female

DRUGS (2)
  1. ZELBORAF [Suspect]
     Indication: METASTATIC MALIGNANT MELANOMA
     Route: 048
     Dates: start: 20120111, end: 20120209
  2. TRIFLUCAN [Suspect]
     Indication: FUNGAL INFECTION
     Route: 065
     Dates: start: 20110206, end: 20120209

REACTIONS (3)
  - Hepatocellular injury [Fatal]
  - Cholestasis [Fatal]
  - Hepatic failure [Fatal]
